FAERS Safety Report 7288496-1 (Version None)
Quarter: 2011Q1

REPORT INFORMATION
  Report Type: 
  Country: None (occurrence: None)
  Receive Date: 20110211
  Receipt Date: 20110209
  Transmission Date: 20110831
  Serious: Yes (Life-Threatening, Hospitalization)
  Sender: FDA-Public Use
  Company Number: D0070080A

PATIENT
  Sex: Female
  Weight: 64 kg

DRUGS (13)
  1. VALORON [Concomitant]
     Route: 065
  2. ARIXTRA [Suspect]
     Indication: THROMBOSIS PROPHYLAXIS
     Dosage: 2.5MG PER DAY
     Route: 058
     Dates: start: 20110101, end: 20110109
  3. TOREM [Concomitant]
     Dosage: 10MG PER DAY
     Route: 065
  4. AMARYL [Concomitant]
     Route: 065
  5. ACETYLSALICYLIC ACID [Concomitant]
     Indication: AORTIC STENOSIS
     Dosage: 100MG PER DAY
     Route: 065
     Dates: end: 20110112
  6. ESIDRIX [Concomitant]
     Route: 065
  7. ACETYLCYSTEINE [Concomitant]
     Dosage: 1AMP PER DAY
     Route: 042
  8. RAMIPRIL [Concomitant]
     Dosage: 10MG PER DAY
     Route: 065
  9. RINGER [Concomitant]
     Dosage: 500ML TWICE PER DAY
     Route: 065
  10. CEFTRIAXON [Concomitant]
     Dosage: 2G PER DAY
     Route: 065
  11. ACTRAPID [Concomitant]
     Route: 065
  12. DIGIMERCK MINOR [Concomitant]
     Route: 065
  13. LORATADINE [Concomitant]
     Route: 065

REACTIONS (3)
  - RETROPERITONEAL HAEMATOMA [None]
  - HAEMOGLOBIN DECREASED [None]
  - OVERDOSE [None]
